FAERS Safety Report 7647986-X (Version None)
Quarter: 2011Q3

REPORT INFORMATION
  Report Type: 
  Country: None (occurrence: None)
  Receive Date: 20110801
  Receipt Date: 20110510
  Transmission Date: 20111222
  Serious: No
  Sender: FDA-Public Use
  Company Number: US-ABBOTT-11P-163-0804554-00

PATIENT
  Sex: Male

DRUGS (2)
  1. PANCREATIN TRIPLE STRENGTH CAP [Suspect]
     Indication: WEIGHT DECREASED
     Dosage: DAILY DOSE:  UNKNOWN, UNIT DOSE: 12000, FREQUENCY: 3 TIMES A DAY
     Route: 065
     Dates: start: 20110507
  2. FAMOTIDINE [Concomitant]
     Indication: GASTROOESOPHAGEAL REFLUX DISEASE
     Dosage: DAILY DOSE:  UNKNOWN
     Route: 065

REACTIONS (1)
  - DYSGEUSIA [None]
